FAERS Safety Report 4364942-8 (Version None)
Quarter: 2004Q2

REPORT INFORMATION
  Report Type: 
  Country: None (occurrence: None)
  Receive Date: 20040524
  Receipt Date: 20010117
  Transmission Date: 20050107
  Serious: Yes (Hospitalization)
  Sender: FDA-Public Use
  Company Number: PERIO-2000-0469

PATIENT
  Age: 48 Year
  Sex: Female

DRUGS (1)
  1. PERIOSTAT [Suspect]
     Indication: PERIODONTITIS
     Dosage: 20 MG, BID, PER ORAL
     Route: 048
     Dates: start: 20000608, end: 20000912

REACTIONS (2)
  - DYSPNOEA [None]
  - URTICARIA [None]
